FAERS Safety Report 23704115 (Version 2)
Quarter: 2024Q2

REPORT INFORMATION
  Report Type: Report from Study
  Country: US (occurrence: US)
  Receive Date: 20240403
  Receipt Date: 20240514
  Transmission Date: 20240716
  Serious: Yes (Other)
  Sender: FDA-Public Use
  Company Number: US-JAZZ PHARMACEUTICALS-2022-US-038662

PATIENT
  Sex: Female

DRUGS (22)
  1. XYWAV [Suspect]
     Active Substance: CALCIUM OXYBATE\MAGNESIUM OXYBATE\POTASSIUM OXYBATE\SODIUM OXYBATE
     Indication: Narcolepsy
     Dosage: UNK
  2. XYWAV [Suspect]
     Active Substance: CALCIUM OXYBATE\MAGNESIUM OXYBATE\POTASSIUM OXYBATE\SODIUM OXYBATE
     Indication: Cataplexy
     Dosage: UNK
  3. XYWAV [Suspect]
     Active Substance: CALCIUM OXYBATE\MAGNESIUM OXYBATE\POTASSIUM OXYBATE\SODIUM OXYBATE
     Indication: Somnolence
  4. PROCARDIA [Concomitant]
     Active Substance: NIFEDIPINE
     Indication: Product administration interrupted
     Dosage: UNK
     Dates: start: 20010601
  5. FLONASE ALLERGY RELIEF [Concomitant]
     Active Substance: FLUTICASONE PROPIONATE
     Indication: Product administration interrupted
     Dosage: UNK
     Dates: start: 20060601
  6. LIDODERM [Concomitant]
     Active Substance: LIDOCAINE
     Indication: Product administration interrupted
     Dosage: UNK
     Dates: start: 20140905
  7. ALLEGRA ALLERGY [Concomitant]
     Active Substance: FEXOFENADINE HYDROCHLORIDE
     Indication: Product administration interrupted
     Dosage: UNK
     Dates: start: 20050911
  8. NITRO-BID [Concomitant]
     Active Substance: NITROGLYCERIN
     Indication: Product administration interrupted
     Dosage: UNK
     Dates: start: 20140911
  9. TRAMADOL HCL [Concomitant]
     Active Substance: TRAMADOL HYDROCHLORIDE
     Indication: Product administration interrupted
     Dosage: UNK
     Dates: start: 20060601
  10. SYNTHROID [Concomitant]
     Active Substance: LEVOTHYROXINE SODIUM
     Indication: Product administration interrupted
     Dosage: UNK
     Dates: start: 20060601
  11. BACLOFEN [Concomitant]
     Active Substance: BACLOFEN
     Indication: Product administration interrupted
     Dosage: UNK
     Dates: start: 20110601
  12. UREA [Concomitant]
     Active Substance: UREA
     Indication: Product administration interrupted
     Dosage: UNK
     Dates: start: 20070601
  13. CELEBREX [Concomitant]
     Active Substance: CELECOXIB
     Indication: Product administration interrupted
     Dosage: UNK
     Dates: start: 20060601
  14. VITAMINS [Concomitant]
     Active Substance: VITAMINS
     Indication: Product administration interrupted
     Dosage: UNK
     Dates: start: 20000601
  15. CALCIUM\VITAMIN D [Concomitant]
     Active Substance: CALCIUM\VITAMIN D
     Indication: Product administration interrupted
     Dosage: UNK
     Dates: start: 20000601
  16. LISINOPRIL [Concomitant]
     Active Substance: LISINOPRIL
     Indication: Product administration interrupted
     Dosage: UNK
     Dates: start: 20160501
  17. RESTASIS [Concomitant]
     Active Substance: CYCLOSPORINE
     Indication: Product administration interrupted
     Dosage: UNK
     Dates: start: 20210401
  18. TREMFYA [Concomitant]
     Active Substance: GUSELKUMAB
     Indication: Product administration interrupted
     Dosage: UNK
     Dates: start: 20210401
  19. OTEZLA [Concomitant]
     Active Substance: APREMILAST
     Indication: Product administration interrupted
     Dosage: UNK
     Dates: start: 20221001
  20. METROGEL [Concomitant]
     Active Substance: METRONIDAZOLE
     Indication: Product administration interrupted
     Dosage: UNK
     Dates: start: 20220601
  21. DULOXETINE HYDROCHLORIDE [Concomitant]
     Active Substance: DULOXETINE HYDROCHLORIDE
     Indication: Product used for unknown indication
     Dosage: UNK
     Dates: start: 20240401
  22. BUPROPION HYDROCHLORIDE [Concomitant]
     Active Substance: BUPROPION HYDROCHLORIDE
     Indication: Product used for unknown indication
     Dosage: UNK
     Dates: start: 20240315

REACTIONS (8)
  - Rotator cuff syndrome [Recovering/Resolving]
  - Influenza [Unknown]
  - Cough [Unknown]
  - Enzyme level increased [Unknown]
  - Hepatic function abnormal [Recovered/Resolved]
  - Back pain [Unknown]
  - Muscle spasms [Unknown]
  - Nausea [Unknown]
